FAERS Safety Report 25248312 (Version 2)
Quarter: 2025Q2

REPORT INFORMATION
  Report Type: Report from Study
  Country: CA (occurrence: CA)
  Receive Date: 20250429
  Receipt Date: 20250522
  Transmission Date: 20250717
  Serious: Yes (Hospitalization, Other)
  Sender: TEVA
  Company Number: CA-TEVA-VS-3303139

PATIENT
  Age: 36 Year
  Sex: Female

DRUGS (1)
  1. OCTREOTIDE [Suspect]
     Active Substance: OCTREOTIDE
     Indication: Acromegaly
     Dosage: SYRINGE
     Route: 030
     Dates: start: 20220328

REACTIONS (5)
  - Meningitis [Recovering/Resolving]
  - Product use issue [Unknown]
  - Sensitive skin [Unknown]
  - Near death experience [Unknown]
  - Cerebrovascular accident [Unknown]

NARRATIVE: CASE EVENT DATE: 20250412
